FAERS Safety Report 4492865-2 (Version None)
Quarter: 2004Q4

REPORT INFORMATION
  Report Type: 
  Country: None (occurrence: None)
  Receive Date: 20041102
  Receipt Date: 20041102
  Transmission Date: 20050328
  Serious: No
  Sender: FDA-Public Use
  Company Number: None

PATIENT
  Age: 44 Year
  Sex: Male

DRUGS (6)
  1. OXCARBAZEPINE 2400MG [Suspect]
     Dosage: 1200MG BID ORAL
     Route: 048
  2. LEVOTHYROXINE SODIUM [Concomitant]
  3. TAMSULOSIN [Concomitant]
  4. LORAZEPAM [Concomitant]
  5. FLUPHENAZINE [Concomitant]
  6. PHENYTOIN [Concomitant]

REACTIONS (1)
  - HYPONATRAEMIA [None]
